FAERS Safety Report 9541004 (Version 1)
Quarter: 2013Q3

REPORT INFORMATION
  Report Type: Spontaneous
  Country: US (occurrence: US)
  Receive Date: 20130922
  Receipt Date: 20130922
  Transmission Date: 20140515
  Serious: No
  Sender: FDA-Public Use
  Company Number: US-ALLERGAN-1218407US

PATIENT
  Age: 57 Year
  Sex: Female

DRUGS (2)
  1. VANIQA [Suspect]
     Indication: HAIR GROWTH ABNORMAL
     Route: 061
     Dates: start: 200111, end: 2001
  2. TAMOXIFEN (TAMOXIFEN CITRATE) [Concomitant]
     Dosage: DF

REACTIONS (2)
  - Nonspecific reaction [Unknown]
  - Application site reaction [Unknown]
